FAERS Safety Report 5496471-2 (Version None)
Quarter: 2007Q4

REPORT INFORMATION
  Report Type: 
  Country: None (occurrence: None)
  Receive Date: 20071025
  Receipt Date: 20071015
  Transmission Date: 20080405
  Serious: Yes (Hospitalization)
  Sender: FDA-Public Use
  Company Number: FR-ELI_LILLY_AND_COMPANY-FR200709005995

PATIENT
  Age: 64 Year
  Sex: Female

DRUGS (8)
  1. FORTEO [Suspect]
     Indication: OSTEOPOROSIS
     Dosage: 20 UG, DAILY (1/D)
     Route: 058
     Dates: start: 20061003
  2. CITALOPRAM HYDROBROMIDE [Concomitant]
     Indication: DEPRESSION
     Dosage: 1 D/F, DAILY (1/D)
     Route: 048
  3. LEXOMIL [Concomitant]
     Indication: DEPRESSION
     Dosage: 1.5 D/F, DAILY (1/D)
     Route: 048
  4. NOCTAMIDE [Concomitant]
     Dosage: 1 D/F, DAILY (1/D)
     Route: 048
  5. CALTRATE + VITAMIN D [Concomitant]
     Indication: OSTEOPOROSIS
     Dosage: 1 D/F, DAILY (1/D)
     Route: 048
  6. PIASCLEDINE [Concomitant]
     Indication: OSTEOARTHRITIS
     Dosage: 1 D/F, DAILY (1/D)
     Route: 048
  7. DAFLON 500 [Concomitant]
     Indication: VENOUS STASIS
     Dosage: 2 D/F, DAILY (1/D)
     Route: 048
  8. DAFALGAN [Concomitant]
     Indication: PAIN
     Dosage: 6 D/F, DAILY (1/D)
     Route: 048

REACTIONS (1)
  - HAEMORRHOIDS [None]
